FAERS Safety Report 14680210 (Version 1)
Quarter: 2018Q1

REPORT INFORMATION
  Report Type: Spontaneous
  Country: CN (occurrence: CN)
  Receive Date: 20180326
  Receipt Date: 20180326
  Transmission Date: 20180509
  Serious: Yes (Death)
  Sender: FDA-Public Use
  Company Number: CN-ABBVIE-18P-035-2297166-00

PATIENT
  Age: 14 Year
  Sex: Female

DRUGS (1)
  1. SODIUM VALPROATE [Suspect]
     Active Substance: VALPROATE SODIUM
     Indication: FRONTAL LOBE EPILEPSY
     Route: 048

REACTIONS (2)
  - Generalised tonic-clonic seizure [Fatal]
  - Sudden unexplained death in epilepsy [Fatal]
